FAERS Safety Report 9629457 (Version 2)
Quarter: 2013Q4

REPORT INFORMATION
  Report Type: Report from Study
  Country: NL (occurrence: NL)
  Receive Date: 20131017
  Receipt Date: 20131017
  Transmission Date: 20140711
  Serious: Yes (Other)
  Sender: FDA-Public Use
  Company Number: NL-CELGENEUS-114-21660-13093229

PATIENT
  Sex: 0

DRUGS (2)
  1. ABRAXANE [Suspect]
     Indication: PANCREATIC CARCINOMA
     Route: 041
     Dates: start: 2013
  2. ABRAXANE [Suspect]
     Route: 041
     Dates: start: 20131003

REACTIONS (2)
  - Thrombosis in device [Recovered/Resolved]
  - Biliary dilatation [Recovered/Resolved]
